FAERS Safety Report 18633370 (Version 1)
Quarter: 2020Q4

REPORT INFORMATION
  Report Type: Report from Study
  Country: US (occurrence: US)
  Receive Date: 20201218
  Receipt Date: 20201218
  Transmission Date: 20210114
  Serious: No
  Sender: FDA-Public Use
  Company Number: US-REGENERON PHARMACEUTICALS, INC.-2019-71349

PATIENT

DRUGS (4)
  1. EYLEA [Suspect]
     Active Substance: AFLIBERCEPT
     Indication: TELANGIECTASIA
     Dosage: 2 MG, Q4W FOR 4 INJECTION THEN EVERY 2 MONTHS
     Route: 031
     Dates: start: 20180516, end: 20190626
  2. OZURDEX [Suspect]
     Active Substance: DEXAMETHASONE
     Indication: MACULAR OEDEMA
  3. EYLEA [Suspect]
     Active Substance: AFLIBERCEPT
     Indication: MACULAR OEDEMA
  4. OZURDEX [Suspect]
     Active Substance: DEXAMETHASONE
     Indication: TELANGIECTASIA
     Dosage: ALTERNATING MONTHS
     Dates: start: 20180516

REACTIONS (2)
  - Off label use [Unknown]
  - Disease progression [Recovering/Resolving]

NARRATIVE: CASE EVENT DATE: 20190626
